FAERS Safety Report 6130982-1 (Version None)
Quarter: 2009Q1

REPORT INFORMATION
  Report Type: 
  Country: None (occurrence: None)
  Receive Date: 20090325
  Receipt Date: 20090310
  Transmission Date: 20090719
  Serious: Yes (Death, Other)
  Sender: FDA-Public Use
  Company Number: FR-PFIZER INC-2007033142

PATIENT

DRUGS (4)
  1. LYRICA [Suspect]
     Indication: CARPAL TUNNEL SYNDROME
     Route: 048
     Dates: start: 20070322, end: 20070330
  2. DI-ANTALVIC [Suspect]
     Indication: BACK PAIN
     Route: 048
     Dates: start: 20061201, end: 20070330
  3. SERETIDE [Suspect]
     Indication: BRONCHITIS CHRONIC
     Route: 048
     Dates: start: 20060501, end: 20070330
  4. CITALOPRAM HYDROBROMIDE [Suspect]
     Indication: DEPRESSION
     Route: 048
     Dates: start: 20061001, end: 20070330

REACTIONS (1)
  - SUDDEN DEATH [None]
